FAERS Safety Report 8596826-3 (Version None)
Quarter: 2012Q3

REPORT INFORMATION
  Report Type: 
  Country: None (occurrence: None)
  Receive Date: 20120815
  Receipt Date: 20120808
  Transmission Date: 20120928
  Serious: Yes (Hospitalization)
  Sender: FDA-Public Use
  Company Number: JP-JNJFOC-20120104858

PATIENT
  Sex: Male
  Weight: 57.2 kg

DRUGS (9)
  1. STELARA [Suspect]
     Route: 058
     Dates: start: 20120207
  2. LAC B [Concomitant]
     Indication: PSORIATIC ARTHROPATHY
     Route: 048
     Dates: start: 20111004
  3. DIFLUCORTOLONE VALERATE [Concomitant]
     Indication: PSORIATIC ARTHROPATHY
     Route: 061
  4. STELARA [Suspect]
     Indication: PSORIATIC ARTHROPATHY
     Route: 058
     Dates: start: 20111227
  5. DICLOFENAC SODIUM [Concomitant]
     Indication: PAIN
     Dates: start: 20101130
  6. STELARA [Suspect]
     Route: 058
     Dates: start: 20120501
  7. LANSOPRAZOLE [Concomitant]
  8. MAXACALCITOL [Concomitant]
     Route: 061
  9. ALLEGRA [Concomitant]
     Route: 048
     Dates: start: 20101111

REACTIONS (1)
  - CHOLECYSTITIS [None]
